FAERS Safety Report 9880359 (Version 1)
Quarter: 2014Q1

REPORT INFORMATION
  Report Type: Spontaneous
  Country: US (occurrence: None)
  Receive Date: 20140206
  Receipt Date: 20140206
  Transmission Date: 20141002
  Serious: Yes (Life-Threatening, Hospitalization)
  Sender: FDA-Public Use
  Company Number: None

PATIENT
  Age: 73 Year
  Sex: Female
  Weight: 46.72 kg

DRUGS (13)
  1. PROLIA [Suspect]
     Indication: OSTEOPOROSIS
     Dates: start: 20130422
  2. KADOTEN [Concomitant]
  3. PROVIGIL [Concomitant]
  4. CRESTOR [Concomitant]
  5. PANTOPRAZOLE [Concomitant]
  6. TRAMADOL [Concomitant]
  7. METOPROLOL [Concomitant]
  8. VIT C [Concomitant]
  9. VIT D [Concomitant]
  10. IRON [Concomitant]
  11. POTASSIUM [Concomitant]
  12. TABPT[IUM [Concomitant]
  13. CLARIDIN [Concomitant]

REACTIONS (9)
  - Weight decreased [None]
  - Pyrexia [None]
  - Asthenia [None]
  - Depression [None]
  - Abasia [None]
  - Dysarthria [None]
  - Discomfort [None]
  - Malaise [None]
  - Unevaluable event [None]
